FAERS Safety Report 25631575 (Version 2)
Quarter: 2025Q3

REPORT INFORMATION
  Report Type: Report from Study
  Country: NZ (occurrence: NZ)
  Receive Date: 20250801
  Receipt Date: 20250808
  Transmission Date: 20251020
  Serious: Yes (Death, Other)
  Sender: UCB
  Company Number: NZ-UCBSA-2025045193

PATIENT
  Sex: Female

DRUGS (1)
  1. ROTIGOTINE [Suspect]
     Active Substance: ROTIGOTINE
     Indication: Parkinson^s disease
     Dosage: 6 MILLIGRAM, PER 24 HOURS
     Route: 062
     Dates: start: 20021018, end: 20240911

REACTIONS (2)
  - Pneumonia [Fatal]
  - Dementia [Unknown]
